FAERS Safety Report 5487435-3 (Version None)
Quarter: 2007Q4

REPORT INFORMATION
  Report Type: 
  Country: None (occurrence: None)
  Receive Date: 20071016
  Receipt Date: 20071005
  Transmission Date: 20080405
  Serious: Yes (Hospitalization)
  Sender: FDA-Public Use
  Company Number: US-PFIZER INC-2006109334

PATIENT
  Sex: Male
  Weight: 98.2 kg

DRUGS (11)
  1. ATORVASTATIN CALCIUM [Suspect]
     Indication: CORONARY ARTERY DISEASE
     Dosage: DAILY DOSE:20MG
     Route: 048
     Dates: start: 20050503, end: 20050530
  2. ATORVASTATIN CALCIUM [Suspect]
     Dosage: DAILY DOSE:20MG
     Route: 048
  3. AMLODIPINE [Concomitant]
     Route: 048
  4. SILDENAFIL [Concomitant]
     Route: 048
     Dates: start: 20050101
  5. VITAMIN CAP [Concomitant]
     Route: 048
     Dates: start: 20050301
  6. ASPIRIN [Concomitant]
     Route: 048
     Dates: start: 19950401
  7. IBUPROFEN [Concomitant]
     Route: 048
     Dates: start: 20040601
  8. PIMECROLIMUS [Concomitant]
     Dosage: TEXT:1%
     Route: 061
     Dates: start: 20030101
  9. TRAZODONE HCL [Concomitant]
     Route: 048
     Dates: start: 20050301
  10. SINEMET [Concomitant]
     Dosage: TEXT:25/100-FREQ:HS
     Route: 048
     Dates: start: 20060321
  11. SERTRALINE [Concomitant]
     Route: 048

REACTIONS (3)
  - BILIARY TRACT DISORDER [None]
  - CHOLECYSTITIS [None]
  - HYPOXIA [None]
